FAERS Safety Report 4693146-4 (Version None)
Quarter: 2005Q2

REPORT INFORMATION
  Report Type: 
  Country: None (occurrence: None)
  Receive Date: 20050613
  Receipt Date: 20050418
  Transmission Date: 20051028
  Serious: Yes (Hospitalization)
  Sender: FDA-Public Use
  Company Number: 603287

PATIENT
  Age: 36 Year
  Sex: Male
  Weight: 2.6 kg

DRUGS (1)
  1. GAMMAGARD S/D [Suspect]
     Indication: HYPOGAMMAGLOBULINAEMIA
     Dosage: 1.5 GM, EVERY WEEK, IV
     Route: 042
     Dates: start: 20050324, end: 20050412

REACTIONS (4)
  - C-REACTIVE PROTEIN INCREASED [None]
  - ERYTHEMA [None]
  - PYREXIA [None]
  - TACHYCARDIA [None]
